FAERS Safety Report 23632074 (Version 1)
Quarter: 2024Q1

REPORT INFORMATION
  Report Type: Spontaneous
  Country: EG (occurrence: EG)
  Receive Date: 20240314
  Receipt Date: 20240314
  Transmission Date: 20240410
  Serious: Yes (Hospitalization)
  Sender: FDA-Public Use
  Company Number: EG-HIKMA PHARMACEUTICALS-EG-H14001-24-01966

PATIENT
  Age: 66 Year
  Sex: Female
  Weight: 83 kg

DRUGS (4)
  1. IRINOTECAN [Suspect]
     Active Substance: IRINOTECAN
     Indication: Gastric cancer
     Dosage: 231.2 MILLIGRAM, EVERY 2 WEEKS
     Route: 041
  2. IRINOTECAN [Suspect]
     Active Substance: IRINOTECAN
     Dosage: 231.2 MILLIGRAM, EVERY 2 WEEKS
     Route: 041
     Dates: start: 20231218
  3. OXALIPLATIN [Suspect]
     Active Substance: OXALIPLATIN
     Indication: Gastric cancer
     Dosage: 157.2 MILLIGRAM, EVERY 2 WEEKS
     Route: 041
  4. OXALIPLATIN [Suspect]
     Active Substance: OXALIPLATIN
     Dosage: 157.2 MILLIGRAM, EVERY 2 WEEKS
     Route: 041
     Dates: start: 20231218

REACTIONS (1)
  - Bronchospasm [Recovered/Resolved]

NARRATIVE: CASE EVENT DATE: 20231218
